FAERS Safety Report 18904275 (Version 1)
Quarter: 2021Q1

REPORT INFORMATION
  Report Type: Spontaneous
  Country: US (occurrence: US)
  Receive Date: 20210217
  Receipt Date: 20210217
  Transmission Date: 20210420
  Serious: No
  Sender: FDA-Public Use
  Company Number: US-JNJFOC-20210225691

PATIENT
  Age: 79 Year
  Sex: Female
  Weight: 71.28 kg

DRUGS (3)
  1. TYLENOL [Suspect]
     Active Substance: ACETAMINOPHEN
     Indication: PAIN
     Dosage: TOOK TYLENOL TWICE
     Route: 065
     Dates: start: 20201023
  2. ELIQUIS [Concomitant]
     Active Substance: APIXABAN
     Indication: PRODUCT USED FOR UNKNOWN INDICATION
     Route: 065
  3. UPTRAVI [Concomitant]
     Active Substance: SELEXIPAG
     Indication: ESSENTIAL HYPERTENSION
     Route: 065

REACTIONS (1)
  - Drug ineffective [Unknown]
